FAERS Safety Report 8421564-7 (Version None)
Quarter: 2012Q2

REPORT INFORMATION
  Report Type: 
  Country: None (occurrence: None)
  Receive Date: 20120605
  Receipt Date: 20120605
  Transmission Date: 20120825
  Serious: Yes (Disabling, Other)
  Sender: FDA-Public Use
  Company Number: None

PATIENT
  Age: 14 Year
  Sex: Male
  Weight: 54.4316 kg

DRUGS (1)
  1. QVAR 80 [Suspect]
     Indication: ASTHMA
     Dosage: 80 2 PUFFS BID ORAL INHALE
     Route: 055
     Dates: start: 20120125, end: 20120326

REACTIONS (7)
  - SWELLING FACE [None]
  - HEADACHE [None]
  - EYE SWELLING [None]
  - LIP SWELLING [None]
  - RASH GENERALISED [None]
  - SWELLING [None]
  - VISUAL IMPAIRMENT [None]
